FAERS Safety Report 22896222 (Version 4)
Quarter: 2024Q1

REPORT INFORMATION
  Report Type: Spontaneous
  Country: US (occurrence: US)
  Receive Date: 20230901
  Receipt Date: 20240207
  Transmission Date: 20240409
  Serious: No
  Sender: FDA-Public Use
  Company Number: US-PFIZER INC-PV202300126148

PATIENT
  Age: 82 Year
  Sex: Male

DRUGS (3)
  1. BOSULIF [Suspect]
     Active Substance: BOSUTINIB MONOHYDRATE
     Indication: Neoplasm malignant
     Dosage: 300 MG, 1X/DAY (TAKE 3 TABLETS BY MOUTH ONCE DAILY WITH FOOD)
     Route: 048
  2. BOSULIF [Suspect]
     Active Substance: BOSUTINIB MONOHYDRATE
     Dosage: 400 MG
  3. BOSULIF [Suspect]
     Active Substance: BOSUTINIB MONOHYDRATE
     Dosage: 300 MG, 1X/DAY (TAKE 3 TABLETS BY MOUTH ONCE DAILY WITH FOOD)
     Route: 048

REACTIONS (1)
  - Neoplasm progression [Unknown]
